FAERS Safety Report 6655843-0 (Version None)
Quarter: 2010Q1

REPORT INFORMATION
  Report Type: 
  Country: None (occurrence: None)
  Receive Date: 20100329
  Receipt Date: 20091218
  Transmission Date: 20100710
  Serious: Yes (Hospitalization)
  Sender: FDA-Public Use
  Company Number: JP-JNJFOC-20090500235

PATIENT
  Sex: Female

DRUGS (18)
  1. CRAVIT [Suspect]
     Indication: PNEUMONIA
     Dosage: 2 DOSE FREQUENCY IN ONE DAY
     Route: 048
  2. CRAVIT [Suspect]
     Indication: DIARRHOEA
     Dosage: 2 DOSE FREQUENCY IN ONE DAY
     Route: 048
  3. CRAVIT [Suspect]
     Indication: NASOPHARYNGITIS
     Dosage: 2 DOSE FREQUENCY IN ONE DAY
     Route: 048
  4. ZITHROMAC [Suspect]
     Indication: PNEUMONIA
     Route: 048
  5. BOFUTSUSHOSAN [Suspect]
     Indication: OBESITY
     Route: 048
  6. PARIET [Suspect]
     Indication: GASTRIC ULCER
     Route: 048
  7. VALSARTAN [Concomitant]
     Route: 065
  8. MECOBALAMIN [Concomitant]
     Indication: NEUROPATHY PERIPHERAL
     Route: 048
  9. CRESTOR [Concomitant]
     Indication: HYPERLIPIDAEMIA
     Route: 048
  10. MUCOSTA [Concomitant]
     Indication: GASTRITIS
     Route: 048
  11. MUCODYNE [Concomitant]
     Indication: PRODUCTIVE COUGH
     Route: 048
  12. ANTOBRON [Concomitant]
     Indication: PRODUCTIVE COUGH
     Route: 048
  13. THEOLONG [Concomitant]
     Indication: BRONCHITIS
     Route: 048
  14. FLUTICASONE PROPIONATE/SALMETEROL [Concomitant]
     Indication: BRONCHITIS
     Route: 055
  15. HOKUNALIN [Concomitant]
     Indication: BRONCHITIS
     Route: 062
  16. CANDESARTAN CILEXETIL [Concomitant]
     Indication: HYPERTENSION
     Route: 048
  17. JUVELA NICOTINATE [Concomitant]
     Indication: PERIPHERAL VASCULAR DISORDER
     Route: 048
  18. ROCEPHIN [Concomitant]
     Indication: PNEUMONIA
     Route: 042

REACTIONS (1)
  - INTERSTITIAL LUNG DISEASE [None]
